FAERS Safety Report 23704102 (Version 2)
Quarter: 2024Q2

REPORT INFORMATION
  Report Type: Spontaneous
  Country: JP (occurrence: JP)
  Receive Date: 20240403
  Receipt Date: 20240424
  Transmission Date: 20240716
  Serious: Yes (Hospitalization, Other)
  Sender: FDA-Public Use
  Company Number: JP-BRISTOL-MYERS SQUIBB COMPANY-2024-051875

PATIENT
  Age: 74 Year
  Sex: Male

DRUGS (5)
  1. SOTYKTU [Suspect]
     Active Substance: DEUCRAVACITINIB
     Indication: Psoriasis
     Route: 048
  2. AMLODIPINE\TELMISARTAN [Concomitant]
     Active Substance: AMLODIPINE\TELMISARTAN
     Indication: Product used for unknown indication
  3. ROSUVASTATIN [Concomitant]
     Active Substance: ROSUVASTATIN
     Indication: Product used for unknown indication
  4. DESLORATADINE [Concomitant]
     Active Substance: DESLORATADINE
     Indication: Product used for unknown indication
  5. PANTOTHENIC ACID [Concomitant]
     Active Substance: PANTOTHENIC ACID
     Indication: Product used for unknown indication

REACTIONS (2)
  - COVID-19 [Recovered/Resolved]
  - Loss of consciousness [Unknown]

NARRATIVE: CASE EVENT DATE: 20240317
